FAERS Safety Report 12725759 (Version 1)
Quarter: 2016Q3

REPORT INFORMATION
  Report Type: Spontaneous
  Country: FR (occurrence: FR)
  Receive Date: 20160908
  Receipt Date: 20160908
  Transmission Date: 20161109
  Serious: Yes (Hospitalization)
  Sender: FDA-Public Use
  Company Number: FR-009507513-1609FRA003220

PATIENT
  Age: 49 Year
  Sex: Female

DRUGS (15)
  1. CARBOPLATIN. [Suspect]
     Active Substance: CARBOPLATIN
     Indication: BURKITT^S LYMPHOMA
     Dosage: 800 MG, QD
     Route: 042
     Dates: start: 20160820, end: 20160820
  2. NEORECORMON [Concomitant]
     Active Substance: ERYTHROPOIETIN
  3. MABTHERA [Suspect]
     Active Substance: RITUXIMAB
     Indication: BURKITT^S LYMPHOMA
     Dosage: 700 MG, QD
     Route: 042
     Dates: start: 20160819, end: 20160819
  4. IFOSFAMIDE. [Suspect]
     Active Substance: IFOSFAMIDE
     Indication: BURKITT^S LYMPHOMA
     Dosage: 8 G, QD
     Route: 042
     Dates: start: 20160820, end: 20160820
  5. THYROZOL [Concomitant]
     Active Substance: METHIMAZOLE
  6. LUTHER [Concomitant]
  7. DUPHALAC [Concomitant]
     Active Substance: LACTULOSE
  8. MESNA. [Suspect]
     Active Substance: MESNA
     Dosage: UNK
     Route: 042
     Dates: start: 20160820, end: 20160820
  9. OXYCONTIN [Concomitant]
     Active Substance: OXYCODONE HYDROCHLORIDE
  10. ZELITREX [Concomitant]
     Active Substance: VALACYCLOVIR HYDROCHLORIDE
  11. IMOVANE [Concomitant]
     Active Substance: ZOPICLONE
  12. EMEND [Suspect]
     Active Substance: APREPITANT
     Indication: PROPHYLAXIS OF NAUSEA AND VOMITING
     Dosage: 205 MG, CYCLICAL
     Route: 048
     Dates: start: 20160820, end: 20160821
  13. ETOPOPHOS [Suspect]
     Active Substance: ETOPOSIDE PHOSPHATE
     Indication: BURKITT^S LYMPHOMA
     Dosage: 190 MG, QD
     Route: 042
     Dates: start: 20160819, end: 20160821
  14. INNOHEP [Concomitant]
     Active Substance: TINZAPARIN SODIUM
  15. LYRICA [Concomitant]
     Active Substance: PREGABALIN

REACTIONS (2)
  - Somnolence [Recovered/Resolved]
  - Headache [Recovered/Resolved]

NARRATIVE: CASE EVENT DATE: 20160821
